FAERS Safety Report 6769279-5 (Version None)
Quarter: 2010Q2

REPORT INFORMATION
  Report Type: 
  Country: None (occurrence: None)
  Receive Date: 20100615
  Receipt Date: 20100604
  Transmission Date: 20101027
  Serious: Yes (Life-Threatening)
  Sender: FDA-Public Use
  Company Number: US-JNJFOC-20100602152

PATIENT
  Sex: Male
  Weight: 100.25 kg

DRUGS (1)
  1. INFLIXIMAB [Suspect]
     Indication: PSORIASIS
     Route: 042

REACTIONS (1)
  - PENIS CARCINOMA [None]
